FAERS Safety Report 8610059-3 (Version None)
Quarter: 2012Q3

REPORT INFORMATION
  Report Type: 
  Country: None (occurrence: None)
  Receive Date: 20120822
  Receipt Date: 20120808
  Transmission Date: 20120928
  Serious: Yes (Death, Hospitalization, Other)
  Sender: FDA-Public Use
  Company Number: US-RANBAXY-2011US-48307

PATIENT
  Age: 33 Year
  Sex: Male

DRUGS (1)
  1. NAPROXEN [Suspect]
     Indication: MIGRAINE
     Dosage: UNK
     Route: 065

REACTIONS (1)
  - KOUNIS SYNDROME [None]
